APPROVED DRUG PRODUCT: HALOPERIDOL
Active Ingredient: HALOPERIDOL LACTATE
Strength: EQ 5MG BASE/ML
Dosage Form/Route: INJECTABLE;INJECTION
Application: A210356 | Product #001
Applicant: FRESENIUS KABI USA LLC
Approved: Jul 1, 2019 | RLD: No | RS: No | Type: DISCN